FAERS Safety Report 17159614 (Version 1)
Quarter: 2019Q4

REPORT INFORMATION
  Report Type: Spontaneous
  Country: MX (occurrence: MX)
  Receive Date: 20191216
  Receipt Date: 20191216
  Transmission Date: 20200122
  Serious: Yes (Other)
  Sender: FDA-Public Use
  Company Number: MX-NOVOPROD-701648

PATIENT
  Age: 82 Year
  Sex: Female
  Weight: 58 kg

DRUGS (6)
  1. TRESIBA [Suspect]
     Active Substance: INSULIN DEGLUDEC
     Indication: DIABETES MELLITUS
     Dosage: 24 IU, QD
     Route: 065
     Dates: start: 201909
  2. LISPRO INSULIN [Concomitant]
     Active Substance: INSULIN LISPRO
     Indication: DIABETES MELLITUS
     Dosage: 17 IU, QD (6IU BEFORE BREAKFAST AND 11IU BEFORE MEAL)
     Route: 065
     Dates: start: 2015
  3. LISPRO INSULIN [Concomitant]
     Active Substance: INSULIN LISPRO
     Dosage: 6 IU, QD (2 IU, BEFORE BREAKFAST, 4 IU BEFORE MEAL )
     Route: 065
     Dates: start: 201909
  4. TRESIBA [Suspect]
     Active Substance: INSULIN DEGLUDEC
     Dosage: 22 IU, QD
     Route: 065
  5. LISPRO INSULIN [Concomitant]
     Active Substance: INSULIN LISPRO
     Dosage: 17 IU, QD (6IU BEFORE BREAKFAST AND 11IU BEFORE MEAL)
     Route: 065
  6. TRAJENTA [Concomitant]
     Active Substance: LINAGLIPTIN
     Indication: DIABETES MELLITUS
     Dosage: ONE TABLET BEFORE MEAL
     Route: 065
     Dates: start: 201909

REACTIONS (4)
  - Neoplasm malignant [Unknown]
  - Hyperglycaemia [Unknown]
  - Blood glucose decreased [Recovered/Resolved]
  - Blood glucose increased [Unknown]

NARRATIVE: CASE EVENT DATE: 201909
